FAERS Safety Report 11189660 (Version 3)
Quarter: 2018Q3

REPORT INFORMATION
  Report Type: Spontaneous
  Country: US (occurrence: US)
  Receive Date: 20150615
  Receipt Date: 20180905
  Transmission Date: 20181010
  Serious: Yes (Hospitalization)
  Sender: FDA-Public Use
  Company Number: US-DSJP-DSU-2015-109434

PATIENT

DRUGS (3)
  1. HYDROCHLOROTHIAZIDE. [Concomitant]
     Active Substance: HYDROCHLOROTHIAZIDE
     Indication: PRODUCT USED FOR UNKNOWN INDICATION
     Dosage: 25 MG, UNK
     Dates: start: 2005
  2. BENICAR HCT [Suspect]
     Active Substance: HYDROCHLOROTHIAZIDE\OLMESARTAN MEDOXOMIL
     Indication: PRODUCT USED FOR UNKNOWN INDICATION
     Dosage: 40/25 MG, QD
  3. BENICAR [Suspect]
     Active Substance: OLMESARTAN MEDOXOMIL
     Indication: HYPERTENSION
     Dosage: 40 MG, QD
     Route: 048
     Dates: start: 2005, end: 201401

REACTIONS (9)
  - Acute kidney injury [Unknown]
  - Diverticulum [Unknown]
  - Haemorrhoids [Unknown]
  - Hiatus hernia [Unknown]
  - Hypotension [Unknown]
  - Syncope [Unknown]
  - Tropical sprue [Unknown]
  - Sprue-like enteropathy [Unknown]
  - Coeliac disease [Unknown]

NARRATIVE: CASE EVENT DATE: 2005
